FAERS Safety Report 11224582 (Version 1)
Quarter: 2015Q2

REPORT INFORMATION
  Report Type: Spontaneous
  Country: GB (occurrence: None)
  Receive Date: 20150625
  Receipt Date: 20150625
  Transmission Date: 20150821
  Serious: Yes (Disabling)
  Sender: FDA-Public Use
  Company Number: NL01PV15_39213

PATIENT
  Age: 46 Year
  Sex: Male
  Weight: 84 kg

DRUGS (11)
  1. ATORVASTATIN [Concomitant]
     Active Substance: ATORVASTATIN
  2. UNKNOWN (TAMSULOSIN) UNKNOWN [Suspect]
     Active Substance: TAMSULOSIN
     Dates: start: 20150609
  3. NITROFURANTOIN. [Concomitant]
     Active Substance: NITROFURANTOIN
  4. DOXYCYCLINE. [Concomitant]
     Active Substance: DOXYCYCLINE
  5. ASPIRIN (ACETYLSALICYLIC ACID) [Concomitant]
     Active Substance: ASPIRIN
  6. NOVORAPID [Concomitant]
     Active Substance: INSULIN ASPART
  7. IRBESARTAN. [Concomitant]
     Active Substance: IRBESARTAN
  8. OMPERAZOLE [Concomitant]
     Active Substance: OMEPRAZOLE
  9. CO-AMOXICLAV [Concomitant]
     Active Substance: AMOXICILLIN\CLAVULANIC ACID
  10. INSULIN GLARGINE [Concomitant]
     Active Substance: INSULIN GLARGINE
  11. TRIMETHOPRIM. [Concomitant]
     Active Substance: TRIMETHOPRIM

REACTIONS (3)
  - Peripheral swelling [None]
  - Palpitations [None]
  - Muscle spasms [None]

NARRATIVE: CASE EVENT DATE: 20150609
